FAERS Safety Report 22210442 (Version 3)
Quarter: 2023Q2

REPORT INFORMATION
  Report Type: Spontaneous
  Country: US (occurrence: None)
  Receive Date: 20230414
  Receipt Date: 20230524
  Transmission Date: 20230722
  Serious: No
  Sender: FDA-Public Use
  Company Number: 2023A070302

PATIENT
  Age: 57 Year
  Sex: Female
  Weight: 56.7 kg

DRUGS (3)
  1. PULMICORT FLEXHALER [Suspect]
     Active Substance: BUDESONIDE
     Indication: Asthma
     Dosage: 180 ONE PUFF TWICE A DAY180UG/MG TWO TIMES A DAY
     Route: 055
  2. PULMICORT FLEXHALER [Suspect]
     Active Substance: BUDESONIDE
     Indication: Gastrooesophageal reflux disease
     Dosage: 180 ONE PUFF TWICE A DAY180UG/MG TWO TIMES A DAY
     Route: 055
  3. PULMICORT FLEXHALER [Suspect]
     Active Substance: BUDESONIDE
     Indication: Cough
     Dosage: 180 ONE PUFF TWICE A DAY180UG/MG TWO TIMES A DAY
     Route: 055

REACTIONS (5)
  - Musculoskeletal disorder [Unknown]
  - Device use issue [Unknown]
  - Device malfunction [Unknown]
  - Off label use [Unknown]
  - Device malfunction [Unknown]
